FAERS Safety Report 12205272 (Version 3)
Quarter: 2016Q4

REPORT INFORMATION
  Report Type: Spontaneous
  Country: JP (occurrence: JP)
  Receive Date: 20160323
  Receipt Date: 20161007
  Transmission Date: 20170207
  Serious: Yes (Hospitalization)
  Sender: FDA-Public Use
  Company Number: JP-PFIZER INC-2016165107

PATIENT
  Age: 67 Year
  Sex: Female

DRUGS (7)
  1. TAKEPRON [Concomitant]
     Active Substance: LANSOPRAZOLE
     Indication: GASTROINTESTINAL DISORDER
     Dosage: UNK
     Dates: start: 20160304, end: 20160311
  2. THIATON [Concomitant]
     Active Substance: TIQUIZIUM BROMIDE
     Dosage: UNK
     Dates: start: 20160206, end: 20160311
  3. LYRICA [Suspect]
     Active Substance: PREGABALIN
     Indication: PAIN
     Dosage: 150 MG, DAILY
     Route: 048
     Dates: start: 20160307, end: 20160311
  4. ACOFIDE [Concomitant]
     Active Substance: ACOTIAMIDE HYDROCHLORIDE
     Indication: GASTROINTESTINAL DISORDER
     Dosage: UNK
     Dates: start: 20160208, end: 20160311
  5. BUSCOPAN [Concomitant]
     Active Substance: BUTYLSCOPOLAMINE BROMIDE
     Indication: GASTROINTESTINAL DISORDER
     Dosage: UNK
     Dates: start: 20160304, end: 20160311
  6. BIO-THREE [Concomitant]
     Active Substance: HERBALS
     Dosage: UNK
     Dates: start: 20160206, end: 20160311
  7. LEXAPRO [Concomitant]
     Active Substance: ESCITALOPRAM OXALATE
     Indication: PAIN
     Dosage: UNK
     Route: 048
     Dates: start: 20160304, end: 20160311

REACTIONS (5)
  - Drug eruption [Not Recovered/Not Resolved]
  - Eye symptom [Unknown]
  - Hypoaesthesia [Not Recovered/Not Resolved]
  - Hypoaesthesia oral [Not Recovered/Not Resolved]
  - Hepatic function abnormal [Not Recovered/Not Resolved]

NARRATIVE: CASE EVENT DATE: 20160311
